FAERS Safety Report 6996268-8 (Version None)
Quarter: 2010Q3

REPORT INFORMATION
  Report Type: 
  Country: None (occurrence: None)
  Receive Date: 20100918
  Receipt Date: 20090309
  Transmission Date: 20110219
  Serious: No
  Sender: FDA-Public Use
  Company Number: US-WYE-H07708809

PATIENT
  Sex: Female
  Weight: 69.01 kg

DRUGS (5)
  1. VENLAFAXINE HYDROCHLORIDE [Suspect]
     Indication: MENOPAUSE
     Dosage: 25 MG EVERY 1 TOT
     Route: 048
     Dates: start: 20081222, end: 20081223
  2. BENADRYL [Concomitant]
  3. ATENOLOL [Concomitant]
  4. DETROL [Concomitant]
  5. NORVASC [Concomitant]

REACTIONS (4)
  - ABDOMINAL PAIN UPPER [None]
  - HALLUCINATION [None]
  - INSOMNIA [None]
  - TACHYPHRENIA [None]
